FAERS Safety Report 10244105 (Version 1)
Quarter: 2014Q2

REPORT INFORMATION
  Report Type: Report from Study
  Country: MX (occurrence: MX)
  Receive Date: 20140618
  Receipt Date: 20140618
  Transmission Date: 20141212
  Serious: Yes (Death)
  Sender: FDA-Public Use
  Company Number: PHHY2014MX075370

PATIENT
  Age: 76 Year
  Sex: Female

DRUGS (1)
  1. CO-DIOVAN [Suspect]
     Dosage: 1 DF (160/12.5 MG), DAILY
     Route: 048

REACTIONS (1)
  - Death [Fatal]
